FAERS Safety Report 7288811-9 (Version None)
Quarter: 2011Q1

REPORT INFORMATION
  Report Type: 
  Country: None (occurrence: None)
  Receive Date: 20110211
  Receipt Date: 20110208
  Transmission Date: 20110831
  Serious: No
  Sender: FDA-Public Use
  Company Number: DE-MERCK-1101DEU00102

PATIENT
  Age: 31 Year
  Sex: Female
  Weight: 48 kg

DRUGS (6)
  1. LOPINAVIR AND RITONAVIR [Concomitant]
     Indication: HIV INFECTION
     Route: 048
     Dates: start: 20100517, end: 20101101
  2. SAQUINAVIR MESYLATE [Concomitant]
     Indication: HIV INFECTION
     Route: 048
     Dates: start: 20100928, end: 20101004
  3. ISENTRESS [Suspect]
     Indication: CD4 LYMPHOCYTES DECREASED
     Route: 048
     Dates: start: 20100928, end: 20101004
  4. EMTRICITABINE AND TENOFOVIR DISOPROXIL FUMARATE [Concomitant]
     Indication: HIV INFECTION
     Route: 048
     Dates: start: 20100517
  5. SULFAMETHOXAZOLE AND TRIMETHOPRIM [Concomitant]
     Indication: ANTIFUNGAL PROPHYLAXIS
     Route: 065
     Dates: start: 20100517
  6. ISENTRESS [Suspect]
     Indication: HIV INFECTION
     Route: 048
     Dates: start: 20100928, end: 20101004

REACTIONS (1)
  - DRUG EXPOSURE DURING PREGNANCY [None]
